FAERS Safety Report 13340541 (Version 3)
Quarter: 2018Q1

REPORT INFORMATION
  Report Type: Report from Study
  Country: US (occurrence: US)
  Receive Date: 20170316
  Receipt Date: 20180122
  Transmission Date: 20180508
  Serious: No
  Sender: FDA-Public Use
  Company Number: PHEH2017US007746

PATIENT
  Sex: Female
  Weight: 53.47 kg

DRUGS (1)
  1. COSENTYX [Suspect]
     Active Substance: SECUKINUMAB
     Indication: PSORIASIS
     Dosage: 300 MG, (2 PENS) QMO (EVERY 4 WEEKS)
     Route: 058
     Dates: start: 20161028

REACTIONS (2)
  - Drug ineffective [Unknown]
  - Post procedural complication [Unknown]
